FAERS Safety Report 25721237 (Version 1)
Quarter: 2025Q3

REPORT INFORMATION
  Report Type: Spontaneous
  Country: US (occurrence: None)
  Receive Date: 20250822
  Receipt Date: 20250822
  Transmission Date: 20251021
  Serious: No
  Sender: FDA-CTU
  Company Number: None

PATIENT
  Age: 44 Year
  Sex: Female
  Weight: 61.65 kg

DRUGS (12)
  1. GABAPENTIN [Suspect]
     Active Substance: GABAPENTIN
     Indication: Procedural pain
     Dosage: FREQUENCY : DAILY;?
     Route: 048
     Dates: start: 20240903, end: 20250803
  2. GABAPENTIN [Suspect]
     Active Substance: GABAPENTIN
     Indication: Restless legs syndrome
  3. INSULIN NOS [Concomitant]
     Active Substance: INSULIN NOS
  4. LEVOTHYROXINE [Concomitant]
     Active Substance: LEVOTHYROXINE
  5. CYTOMEL [Concomitant]
     Active Substance: LIOTHYRONINE SODIUM
  6. RINVOQ [Concomitant]
     Active Substance: UPADACITINIB
  7. TRAMADOL [Concomitant]
     Active Substance: TRAMADOL
  8. IMURAN [Concomitant]
     Active Substance: AZATHIOPRINE
  9. ESTROGENS [Concomitant]
     Active Substance: ESTROGENS
  10. PROGESTERONE [Concomitant]
     Active Substance: PROGESTERONE
  11. VITAMINS [Concomitant]
     Active Substance: VITAMINS
  12. MAGNESIUM [Concomitant]
     Active Substance: MAGNESIUM

REACTIONS (6)
  - Drug ineffective [None]
  - Inadequate analgesia [None]
  - Memory impairment [None]
  - Aphasia [None]
  - Aphasia [None]
  - Cognitive disorder [None]

NARRATIVE: CASE EVENT DATE: 20240903
